FAERS Safety Report 13063637 (Version 2)
Quarter: 2017Q1

REPORT INFORMATION
  Report Type: Spontaneous
  Country: US (occurrence: US)
  Receive Date: 20161227
  Receipt Date: 20170118
  Transmission Date: 20170428
  Serious: No
  Sender: FDA-Public Use
  Company Number: US-009507513-1612USA006334

PATIENT
  Sex: Female

DRUGS (1)
  1. NUVARING [Suspect]
     Active Substance: ETHINYL ESTRADIOL\ETONOGESTREL
     Dosage: 1 RING, UNK,  (STRENGTH: 0.015/0.12 (UNITS NOT PROVIDED))
     Route: 067

REACTIONS (2)
  - Device breakage [Unknown]
  - No adverse event [Unknown]
